FAERS Safety Report 18668900 (Version 1)
Quarter: 2020Q4

REPORT INFORMATION
  Report Type: Spontaneous
  Country: US (occurrence: US)
  Receive Date: 20201227
  Receipt Date: 20201227
  Transmission Date: 20210114
  Serious: Yes (Disabling)
  Sender: FDA-Public Use
  Company Number: None

PATIENT
  Age: 38 Year
  Sex: Female
  Weight: 63 kg

DRUGS (5)
  1. MULTIVITAMIN [Concomitant]
     Active Substance: VITAMINS
  2. MELATONIN [Concomitant]
     Active Substance: MELATONIN
  3. IBUPROFEN. [Concomitant]
     Active Substance: IBUPROFEN
  4. CEFDINIR. [Suspect]
     Active Substance: CEFDINIR
     Indication: SINUSITIS
     Dosage: ?          QUANTITY:20 CAPSULE(S);?
     Route: 048
     Dates: start: 20201204, end: 20201215
  5. MIRTZAPINE [Concomitant]

REACTIONS (8)
  - Anxiety [None]
  - Balance disorder [None]
  - Hyperhidrosis [None]
  - Depression [None]
  - Nightmare [None]
  - Feeling abnormal [None]
  - Insomnia [None]
  - Palpitations [None]

NARRATIVE: CASE EVENT DATE: 20201205
